FAERS Safety Report 25317807 (Version 1)
Quarter: 2025Q2

REPORT INFORMATION
  Report Type: Spontaneous
  Country: FR (occurrence: FR)
  Receive Date: 20250515
  Receipt Date: 20250515
  Transmission Date: 20250716
  Serious: Yes (Other)
  Sender: MACLEODS
  Company Number: FR-MLMSERVICE-20190515-1749519-1

PATIENT

DRUGS (1)
  1. DOXYCYCLINE [Suspect]
     Active Substance: DOXYCYCLINE
     Indication: Malaria prophylaxis
     Route: 065
     Dates: start: 2017

REACTIONS (5)
  - Pelvic pain [Recovered/Resolved]
  - Pollakiuria [Recovered/Resolved]
  - Malaise [Recovered/Resolved]
  - Nocturia [Recovered/Resolved]
  - Micturition urgency [Recovered/Resolved]

NARRATIVE: CASE EVENT DATE: 20170101
